FAERS Safety Report 8884357 (Version 1)
Quarter: 2012Q4

REPORT INFORMATION
  Report Type: 
  Country: CA (occurrence: CA)
  Receive Date: 20121104
  Receipt Date: 20121104
  Transmission Date: 20130627
  Serious: Yes (Other)
  Sender: FDA-Public Use
  Company Number: PHHY2012CA099499

PATIENT
  Age: 44 Year
  Sex: Female

DRUGS (6)
  1. GILENYA [Suspect]
     Indication: RELAPSING-REMITTING MULTIPLE SCLEROSIS
     Dosage: 0.5 mg, QD
     Route: 048
     Dates: start: 201106, end: 201206
  2. TEGRETOL [Suspect]
  3. AMANTADINE [Concomitant]
  4. VITAMIN D [Concomitant]
  5. ATIVAN [Concomitant]
  6. MIGREX PINK [Concomitant]

REACTIONS (2)
  - Syncope [Recovered/Resolved]
  - Anaemia [Unknown]
